FAERS Safety Report 14261020 (Version 1)
Quarter: 2017Q4

REPORT INFORMATION
  Report Type: Spontaneous
  Country: US (occurrence: None)
  Receive Date: 20171207
  Receipt Date: 20171207
  Transmission Date: 20180321
  Serious: Yes (Hospitalization)
  Sender: FDA-Public Use
  Company Number: None

PATIENT
  Age: 78 Year
  Sex: Female

DRUGS (4)
  1. TEMOZOLOMIDE 250MG [Suspect]
     Active Substance: TEMOZOLOMIDE
     Indication: BRAIN NEOPLASM MALIGNANT
     Route: 048
     Dates: start: 20171010
  2. DEXAMETHASON [Concomitant]
     Active Substance: DEXAMETHASONE
  3. SYNVISC [Concomitant]
     Active Substance: HYALURONATE SODIUM
  4. KEPPRA [Concomitant]
     Active Substance: LEVETIRACETAM

REACTIONS (1)
  - Seizure [None]

NARRATIVE: CASE EVENT DATE: 20171116
